FAERS Safety Report 6309264-0 (Version None)
Quarter: 2009Q3

REPORT INFORMATION
  Report Type: 
  Country: None (occurrence: None)
  Receive Date: 20090814
  Receipt Date: 20090803
  Transmission Date: 20100115
  Serious: Yes (Hospitalization)
  Sender: FDA-Public Use
  Company Number: GB-PFIZER INC-2009227321

PATIENT
  Age: 59 Year

DRUGS (4)
  1. EXEMESTANE [Suspect]
     Indication: BREAST CANCER
     Dosage: UNK
     Dates: start: 20050623
  2. GLUCOSAMINE [Concomitant]
  3. CANDESARTAN [Concomitant]
  4. TRAVATAN [Concomitant]

REACTIONS (1)
  - OVARIAN DISORDER [None]
